FAERS Safety Report 8960015 (Version 1)
Quarter: 2012Q4

REPORT INFORMATION
  Report Type: 
  Country: US (occurrence: US)
  Receive Date: 20121212
  Receipt Date: 20121212
  Transmission Date: 20130627
  Serious: Yes (Hospitalization)
  Sender: FDA-Public Use
  Company Number: PHEH2012US024190

PATIENT
  Sex: Female

DRUGS (7)
  1. GLEEVEC [Suspect]
     Indication: CHRONIC MYELOID LEUKAEMIA
     Dosage: 400 mg, daily
     Route: 048
     Dates: start: 20120911, end: 20121206
  2. VITAMIN D3 [Concomitant]
  3. HYDROCODONE BITARTRATE [Concomitant]
  4. ETODOLAC [Concomitant]
  5. PROPAFENONE [Concomitant]
  6. DIGOXIN [Concomitant]
  7. XYZAL [Concomitant]

REACTIONS (1)
  - Lung disorder [Unknown]
